FAERS Safety Report 5689258-9 (Version None)
Quarter: 2008Q1

REPORT INFORMATION
  Report Type: 
  Country: None (occurrence: None)
  Receive Date: 20080331
  Receipt Date: 20080319
  Transmission Date: 20080703
  Serious: Yes (Hospitalization)
  Sender: FDA-Public Use
  Company Number: US-ELI_LILLY_AND_COMPANY-US200803004453

PATIENT
  Sex: Female

DRUGS (2)
  1. FORTEO [Suspect]
     Dosage: UNK, UNK
     Dates: start: 20060301
  2. FORTEO [Suspect]

REACTIONS (8)
  - ARTHRITIS [None]
  - CONFUSIONAL STATE [None]
  - FALL [None]
  - FATIGUE [None]
  - KNEE ARTHROPLASTY [None]
  - KNEE OPERATION [None]
  - SOMNOLENCE [None]
  - TRAUMATIC BRAIN INJURY [None]
